FAERS Safety Report 8612303-5 (Version None)
Quarter: 2012Q3

REPORT INFORMATION
  Report Type: 
  Country: None (occurrence: None)
  Receive Date: 20120822
  Receipt Date: 20120803
  Transmission Date: 20120928
  Serious: No
  Sender: FDA-Public Use
  Company Number: US-BAYER-2012-079908

PATIENT
  Age: 64 Year
  Sex: Male
  Weight: 74.83 kg

DRUGS (6)
  1. ONE-A-DAY ESSENTIAL [Concomitant]
  2. ALEVE (CAPLET) [Suspect]
     Dosage: 1 DF, QD
     Route: 048
     Dates: start: 20100101, end: 20120727
  3. GREEN TEA PILL [Concomitant]
  4. OSTEO BI-FLEX [Concomitant]
  5. HAIR SKIN AND NAILS PILL [Concomitant]
  6. ST. JOHNS WORT [Concomitant]

REACTIONS (3)
  - FATIGUE [None]
  - DIZZINESS [None]
  - HEART RATE INCREASED [None]
